FAERS Safety Report 7370214-X (Version None)
Quarter: 2011Q1

REPORT INFORMATION
  Report Type: 
  Country: None (occurrence: None)
  Receive Date: 20110318
  Receipt Date: 20110318
  Transmission Date: 20110831
  Serious: Yes (Disabling, Other)
  Sender: FDA-Public Use
  Company Number: None

PATIENT
  Age: 45 Year
  Sex: Male
  Weight: 99.7913 kg

DRUGS (1)
  1. STERILE LUBRICATING JELLY MCKESSON MEDI PAK PERFORMANCE [Suspect]
     Indication: CATHETER PLACEMENT
     Dosage: AS NEEDED
     Dates: start: 20101201, end: 20110201

REACTIONS (3)
  - DRUG INEFFECTIVE [None]
  - PRODUCT QUALITY ISSUE [None]
  - DEVICE RELATED INFECTION [None]
